FAERS Safety Report 8936846 (Version 1)
Quarter: 2012Q4

REPORT INFORMATION
  Report Type: Report from Study
  Country: JP (occurrence: JP)
  Receive Date: 20121130
  Receipt Date: 20121130
  Transmission Date: 20130627
  Serious: Yes (Hospitalization)
  Sender: FDA-Public Use
  Company Number: JP-VERTEX PHARMACEUTICAL INC.-2012-025247

PATIENT
  Age: 62 Year
  Sex: Male

DRUGS (17)
  1. VX-950 (TELAPREVIR) [Suspect]
     Indication: CHRONIC HEPATITIS C
     Dosage: 2250 mg, qd
     Route: 048
     Dates: start: 20120809, end: 20120809
  2. VX-950 (TELAPREVIR) [Suspect]
     Dosage: 1500 mg, qd
     Route: 048
     Dates: start: 20120810, end: 20121021
  3. RIBAVIRIN [Suspect]
     Indication: CHRONIC HEPATITIS C
     Dosage: 800 mg, qd
     Route: 048
     Dates: start: 20120809, end: 20121021
  4. PEGINTERFERON ALFA-2B [Suspect]
     Indication: CHRONIC HEPATITIS C
     Dosage: 1.5 ?g/kg, week
     Route: 058
     Dates: start: 20120809, end: 20121018
  5. AMLODIPINE                         /00972402/ [Concomitant]
     Dosage: 5 mg, qd
     Route: 048
     Dates: end: 20121018
  6. REVOLADE [Concomitant]
     Dosage: 12.5 mg, qd
  7. SEFIROM [Concomitant]
     Dosage: UNK
     Route: 042
     Dates: start: 20121023, end: 20121025
  8. ISOTONIC SODIUM CHLORIDE SOLUTION [Concomitant]
     Dosage: UNK
     Route: 042
     Dates: start: 20121023, end: 20121025
  9. ISOTONIC SODIUM CHLORIDE SOLUTION [Concomitant]
     Dosage: UNK
     Route: 042
     Dates: start: 20121026, end: 20121102
  10. FINIBAX [Concomitant]
     Dosage: UNK
     Route: 042
     Dates: start: 20121026, end: 20121102
  11. GLIMICRON [Concomitant]
     Dosage: 40 mg, qd
     Route: 048
  12. MEDET [Concomitant]
     Dosage: 500 mg, qd
     Route: 048
  13. METGLUCO [Concomitant]
     Dosage: 250 mg, qd
     Route: 048
  14. URIEF [Concomitant]
     Dosage: 8 mg, qd
     Route: 048
  15. LAMISIL                            /00992601/ [Concomitant]
     Dosage: UNK, prn
     Route: 061
  16. FEBURIC [Concomitant]
     Dosage: 10 mg, qd
     Route: 048
  17. GLACTIV [Concomitant]
     Dosage: 50 mg, qd
     Route: 048

REACTIONS (1)
  - Pyrexia [Recovered/Resolved]
